FAERS Safety Report 5629106-6 (Version None)
Quarter: 2008Q1

REPORT INFORMATION
  Report Type: 
  Country: None (occurrence: None)
  Receive Date: 20080216
  Receipt Date: 20080123
  Transmission Date: 20080703
  Serious: No
  Sender: FDA-Public Use
  Company Number: US-BAXTER-2008BH000417

PATIENT
  Age: 76 Year
  Sex: Female
  Weight: 68 kg

DRUGS (8)
  1. HEPARIN SODIUM [Suspect]
     Indication: PROPHYLAXIS
     Route: 042
     Dates: start: 20080104, end: 20080104
  2. HEPARIN SODIUM [Suspect]
     Route: 042
     Dates: start: 20080104, end: 20080104
  3. HEPARIN SODIUM [Suspect]
     Route: 042
     Dates: start: 20080104, end: 20080104
  4. HEPARIN SODIUM [Suspect]
     Route: 042
     Dates: start: 20080104, end: 20080104
  5. HEPARIN SODIUM [Suspect]
     Route: 042
     Dates: start: 20080107, end: 20080107
  6. HEPARIN SODIUM [Suspect]
     Route: 042
     Dates: start: 20080107, end: 20080107
  7. HEPARIN SODIUM [Suspect]
     Route: 042
     Dates: start: 20080107, end: 20080107
  8. HEPARIN SODIUM [Suspect]
     Route: 042
     Dates: start: 20080107, end: 20080107

REACTIONS (4)
  - BLOOD PRESSURE DECREASED [None]
  - DYSPNOEA [None]
  - HYPOAESTHESIA [None]
  - PARAESTHESIA [None]
